FAERS Safety Report 14630258 (Version 1)
Quarter: 2018Q1

REPORT INFORMATION
  Report Type: Spontaneous
  Country: US (occurrence: US)
  Receive Date: 20180313
  Receipt Date: 20180313
  Transmission Date: 20180509
  Serious: Yes (Life-Threatening, Disabling)
  Sender: FDA-Public Use
  Company Number: None

PATIENT
  Age: 48 Year
  Sex: Male
  Weight: 76.5 kg

DRUGS (11)
  1. XANAX [Concomitant]
     Active Substance: ALPRAZOLAM
  2. FINASTERIDE. [Suspect]
     Active Substance: FINASTERIDE
     Indication: ALOPECIA
     Dosage: ?          QUANTITY:1 TABLET(S);?
     Route: 048
  3. TRAZODONE [Concomitant]
     Active Substance: TRAZODONE HYDROCHLORIDE
  4. OMEGA 3 [Concomitant]
     Active Substance: OMEGA-3 FATTY ACIDS
  5. TESTOSTERON [Concomitant]
     Active Substance: TESTOSTERONE
  6. CIALIS [Concomitant]
     Active Substance: TADALAFIL
  7. FLONASE [Concomitant]
     Active Substance: FLUTICASONE PROPIONATE
  8. FISH OIL [Concomitant]
     Active Substance: FISH OIL
  9. MULTI VITAMIN [Concomitant]
     Active Substance: VITAMINS
  10. ANASTROZOLE. [Concomitant]
     Active Substance: ANASTROZOLE
  11. ADDYI [Concomitant]
     Active Substance: FLIBANSERIN

REACTIONS (7)
  - Orgasm abnormal [None]
  - Fatigue [None]
  - Decreased interest [None]
  - Insomnia [None]
  - Anxiety [None]
  - Suicidal ideation [None]
  - Cognitive disorder [None]

NARRATIVE: CASE EVENT DATE: 20151205
